FAERS Safety Report 14940617 (Version 2)
Quarter: 2018Q2

REPORT INFORMATION
  Report Type: Spontaneous
  Country: US (occurrence: US)
  Receive Date: 20180525
  Receipt Date: 20180614
  Transmission Date: 20180711
  Serious: No
  Sender: FDA-Public Use
  Company Number: US-UNITED THERAPEUTICS-UNT-2018-007249

PATIENT
  Age: 79 Year
  Sex: Female
  Weight: 73.47 kg

DRUGS (1)
  1. ORENITRAM [Suspect]
     Active Substance: TREPROSTINIL
     Indication: PULMONARY ARTERIAL HYPERTENSION
     Dosage: 4 MG, TID
     Route: 048
     Dates: start: 20160303

REACTIONS (8)
  - Bronchitis [Unknown]
  - Asthenia [Unknown]
  - Back injury [Unknown]
  - Malaise [Unknown]
  - Productive cough [Unknown]
  - Fatigue [Unknown]
  - Dyspnoea exertional [Unknown]
  - Muscle spasms [Unknown]

NARRATIVE: CASE EVENT DATE: 201805
